FAERS Safety Report 24581188 (Version 1)
Quarter: 2024Q4

REPORT INFORMATION
  Report Type: Spontaneous
  Country: US (occurrence: US)
  Receive Date: 20241105
  Receipt Date: 20241105
  Transmission Date: 20250115
  Serious: No
  Sender: GLENMARK
  Company Number: US-GLENMARK PHARMACEUTICALS-2024GMK093498

PATIENT

DRUGS (1)
  1. APREMILAST [Suspect]
     Active Substance: APREMILAST
     Indication: Psoriasis
     Dosage: 1 DOSAGE FORM, OD, ONE PILL, DAILY IN THE EVENING
     Route: 048
     Dates: start: 20140901, end: 20240810

REACTIONS (5)
  - Rhinorrhoea [Recovered/Resolved]
  - Sneezing [Recovered/Resolved]
  - Hyperhidrosis [Recovered/Resolved]
  - Adulterated product [Unknown]
  - Product quality issue [Unknown]

NARRATIVE: CASE EVENT DATE: 20240808
